FAERS Safety Report 16274699 (Version 1)
Quarter: 2019Q2

REPORT INFORMATION
  Report Type: Spontaneous
  Country: US (occurrence: US)
  Receive Date: 20190503
  Receipt Date: 20190503
  Transmission Date: 20190711
  Serious: Yes (Hospitalization)
  Sender: FDA-Public Use
  Company Number: None

PATIENT
  Age: 79 Year
  Sex: Female
  Weight: 53 kg

DRUGS (2)
  1. RISPERIDONE. [Suspect]
     Active Substance: RISPERIDONE
     Indication: PARKINSON^S DISEASE
     Route: 048
     Dates: start: 20190417, end: 20190503
  2. ROPINIROLE 1MG [Concomitant]
     Dates: start: 20190501, end: 20190503

REACTIONS (3)
  - Transient ischaemic attack [None]
  - Product dispensing error [None]
  - Wrong product administered [None]

NARRATIVE: CASE EVENT DATE: 20190503
